FAERS Safety Report 10182366 (Version 1)
Quarter: 2014Q2

REPORT INFORMATION
  Report Type: Spontaneous
  Country: US (occurrence: None)
  Receive Date: 20140519
  Receipt Date: 20140519
  Transmission Date: 20141212
  Serious: No
  Sender: FDA-Public Use
  Company Number: None

PATIENT
  Age: 67 Year
  Sex: Female
  Weight: 90.72 kg

DRUGS (12)
  1. JANUVIA [Suspect]
     Indication: BLOOD GLUCOSE INCREASED
     Dosage: 1 PILL 1 DAILY MOUTH
     Route: 048
     Dates: start: 20140212, end: 20140417
  2. METCORMIN [Concomitant]
  3. GLIPIZIDE [Concomitant]
  4. BENAZAPRIL [Concomitant]
  5. ASPIRIN [Concomitant]
  6. VITAMIN E [Concomitant]
  7. OMEGA 3 [Concomitant]
  8. DANDELION ROOT [Concomitant]
  9. HAWTHORN [Concomitant]
  10. INSTAFLEX JOINT SUPPORT [Concomitant]
  11. B12 [Concomitant]
  12. DHEA [Concomitant]

REACTIONS (2)
  - Malaise [None]
  - Weight decreased [None]
